FAERS Safety Report 8295572-3 (Version None)
Quarter: 2012Q2

REPORT INFORMATION
  Report Type: 
  Country: None (occurrence: None)
  Receive Date: 20120418
  Receipt Date: 20120412
  Transmission Date: 20120825
  Serious: Yes (Hospitalization)
  Sender: FDA-Public Use
  Company Number: US-BAYER-2011-023232

PATIENT
  Age: 36 Year
  Sex: Female
  Weight: 79.819 kg

DRUGS (20)
  1. YAZ [Suspect]
     Indication: PREMENSTRUAL SYNDROME
  2. ASCORBIC ACID [Concomitant]
  3. BUSPIRONE HCL [Concomitant]
     Indication: ANXIETY
     Dosage: UNK
     Dates: start: 20090101
  4. ZYRTEC [Concomitant]
     Indication: SEASONAL ALLERGY
  5. YAZ [Suspect]
     Indication: MENSTRUATION IRREGULAR
  6. PROVENTIL [Concomitant]
  7. ULTRAM [Concomitant]
     Indication: PAIN
     Dosage: UNK
     Route: 048
     Dates: start: 20090225
  8. PHENTERMINE [Concomitant]
     Indication: WEIGHT DECREASED
     Dosage: UNK
     Route: 048
     Dates: start: 20090224
  9. BUSPAR [Concomitant]
  10. ASPIRIN [Concomitant]
  11. TYLENOL (CAPLET) [Concomitant]
     Indication: PAIN
     Dosage: UNK
     Route: 048
     Dates: start: 20090225
  12. YAZ [Suspect]
     Indication: CONTRACEPTION
     Dosage: UNK
     Route: 048
     Dates: start: 20070601, end: 20090301
  13. ZYRTEC [Concomitant]
     Indication: HYPERSENSITIVITY
     Dosage: 10 MG, UNK
  14. YAZ [Suspect]
  15. VITAMINS WITH MINERALS [Concomitant]
  16. PHENERGAN HCL [Concomitant]
     Dosage: 50 MG, UNK
     Route: 030
     Dates: start: 20090211
  17. CLONAZEPAM [Concomitant]
     Indication: ANXIETY
     Dosage: UNK
     Dates: start: 20070101
  18. METFORMIN HCL [Concomitant]
     Indication: HORMONE LEVEL ABNORMAL
     Dosage: 500 MG, UNK
     Dates: start: 20070101
  19. LORAZEPAM [Concomitant]
     Indication: ANXIETY
     Dosage: UNK
     Dates: start: 20070101, end: 20090301
  20. ROCEPHIN [Concomitant]
     Indication: CELLULITIS
     Dosage: 1 G, UNK
     Route: 030
     Dates: start: 20090211, end: 20090212

REACTIONS (8)
  - PSYCHOLOGICAL TRAUMA [None]
  - FEAR [None]
  - ANXIETY [None]
  - DEPRESSION [None]
  - PAIN [None]
  - DEEP VEIN THROMBOSIS [None]
  - EMOTIONAL DISTRESS [None]
  - ANHEDONIA [None]
